FAERS Safety Report 20837201 (Version 2)
Quarter: 2022Q2

REPORT INFORMATION
  Report Type: Spontaneous
  Country: GR (occurrence: GR)
  Receive Date: 20220517
  Receipt Date: 20220530
  Transmission Date: 20220721
  Serious: Yes (Death, Hospitalization, Other)
  Sender: FDA-Public Use
  Company Number: GR-009507513-2204GRC009873

PATIENT
  Sex: Female

DRUGS (1)
  1. KEYTRUDA [Suspect]
     Active Substance: PEMBROLIZUMAB
     Indication: Non-small cell lung cancer
     Dosage: UNK

REACTIONS (5)
  - Malignant neoplasm progression [Fatal]
  - Tubulointerstitial nephritis [Recovering/Resolving]
  - Thrombocytopenia [Unknown]
  - Bone marrow infiltration [Unknown]
  - Disseminated intravascular coagulation [Unknown]
